FAERS Safety Report 7285149-0 (Version None)
Quarter: 2011Q1

REPORT INFORMATION
  Report Type: 
  Country: None (occurrence: None)
  Receive Date: 20110210
  Receipt Date: 20110207
  Transmission Date: 20110831
  Serious: Yes (Death, Other)
  Sender: FDA-Public Use
  Company Number: PHHY2010US77652

PATIENT
  Sex: Male
  Weight: 70 kg

DRUGS (6)
  1. SINEMET [Concomitant]
     Indication: PARKINSON'S DISEASE
     Dosage: UNK,7 TIMES DAILY
     Route: 048
  2. PAXIL [Concomitant]
     Indication: DEPRESSION
     Dosage: 20 MG DAILY
     Route: 048
  3. MIRAPEX [Concomitant]
     Indication: PARKINSON'S DISEASE
     Dosage: UNK, 7  TIMES DAILY
  4. AMANTADINE HCL [Concomitant]
     Dosage: 100 MG, DAILY
  5. STALEVO 100 [Suspect]
     Indication: PARKINSON'S DISEASE
     Dosage: 150 MG, 7 TIMES PER DAY
     Dates: start: 20100825
  6. COMTAN [Suspect]
     Indication: PARKINSON'S DISEASE
     Dosage: UNK, 6 TIMES DAILY
     Route: 048

REACTIONS (2)
  - PARKINSON'S DISEASE [None]
  - DEATH [None]
